FAERS Safety Report 8307371-4 (Version None)
Quarter: 2012Q2

REPORT INFORMATION
  Report Type: 
  Country: None (occurrence: None)
  Receive Date: 20120424
  Receipt Date: 20120413
  Transmission Date: 20120825
  Serious: Yes (Other)
  Sender: FDA-Public Use
  Company Number: ES-FRI-1000029953

PATIENT
  Age: 85 Year
  Sex: Male

DRUGS (5)
  1. ROFLUMILAST [Suspect]
     Indication: CHRONIC OBSTRUCTIVE PULMONARY DISEASE
     Dosage: 500 MCG
     Route: 048
     Dates: start: 20110430, end: 20110506
  2. RILAST [Concomitant]
     Dosage: 2 FIXED DOSE (320/9 MCG)
     Route: 055
     Dates: start: 20060214
  3. SPIRIVA [Concomitant]
     Route: 055
     Dates: start: 20030415
  4. LORAZEPAM [Concomitant]
     Route: 048
     Dates: start: 20090916
  5. OMEPRAZOLE [Concomitant]
     Route: 048
     Dates: start: 20061212

REACTIONS (5)
  - TESTICULAR PAIN [None]
  - MYALGIA [None]
  - NERVOUSNESS [None]
  - MUSCLE SPASMS [None]
  - INSOMNIA [None]
